FAERS Safety Report 7220048-1 (Version None)
Quarter: 2011Q1

REPORT INFORMATION
  Report Type: 
  Country: None (occurrence: None)
  Receive Date: 20110111
  Receipt Date: 20110105
  Transmission Date: 20110831
  Serious: Yes (Other)
  Sender: FDA-Public Use
  Company Number: A0903349A

PATIENT
  Age: 66 Year
  Sex: Female

DRUGS (3)
  1. MULTIVITAMIN [Concomitant]
  2. LOVAZA [Suspect]
     Dosage: 1G TWICE PER DAY
     Route: 048
     Dates: start: 20090701, end: 20100101
  3. ASPIRIN [Concomitant]
     Dates: end: 20100101

REACTIONS (5)
  - RECTAL HAEMORRHAGE [None]
  - LOW DENSITY LIPOPROTEIN INCREASED [None]
  - CONSTIPATION [None]
  - FAECES HARD [None]
  - BLOOD CHOLESTEROL INCREASED [None]
